FAERS Safety Report 17158377 (Version 2)
Quarter: 2020Q1

REPORT INFORMATION
  Report Type: Spontaneous
  Country: US (occurrence: US)
  Receive Date: 20191216
  Receipt Date: 20200330
  Transmission Date: 20200409
  Serious: Yes (Other)
  Sender: FDA-Public Use
  Company Number: US-GILEAD-2019-0442844

PATIENT
  Age: 47 Year
  Sex: Male

DRUGS (28)
  1. ZOLPIDEM [Concomitant]
     Active Substance: ZOLPIDEM TARTRATE
  2. HYDROMORPHONE [Concomitant]
     Active Substance: HYDROMORPHONE
  3. ANUCORT-HC [Concomitant]
     Active Substance: HYDROCORTISONE ACETATE
  4. ATRIPLA [Suspect]
     Active Substance: EFAVIRENZ\EMTRICITABINE\TENOFOVIR DISOPROXIL FUMARATE
     Dosage: UNK
     Route: 048
     Dates: start: 201201, end: 201202
  5. TRAMADOL. [Concomitant]
     Active Substance: TRAMADOL
  6. ONDANSETRON [Concomitant]
     Active Substance: ONDANSETRON
  7. TRUVADA [Suspect]
     Active Substance: EMTRICITABINE\TENOFOVIR DISOPROXIL FUMARATE
     Indication: HIV INFECTION
     Dosage: UNK
     Route: 048
     Dates: start: 20140528, end: 20190112
  8. AZITHROMYCIN ANHYDROUS. [Concomitant]
     Active Substance: AZITHROMYCIN ANHYDROUS
  9. MORPHINE [Concomitant]
     Active Substance: MORPHINE
  10. CHANTIX [Concomitant]
     Active Substance: VARENICLINE TARTRATE
  11. PHENAZOPYRIDINE. [Concomitant]
     Active Substance: PHENAZOPYRIDINE
  12. ATRIPLA [Suspect]
     Active Substance: EFAVIRENZ\EMTRICITABINE\TENOFOVIR DISOPROXIL FUMARATE
     Indication: HIV INFECTION
     Dosage: UNK
     Route: 048
     Dates: start: 20110418, end: 20121212
  13. TIVICAY [Concomitant]
     Active Substance: DOLUTEGRAVIR SODIUM
  14. CHLO TUSS [Concomitant]
     Active Substance: CHLOPHEDIANOL HYDROCHLORIDE\DEXBROMPHENIRAMINE MALEATE\PHENYLEPHRINE HYDROCHLORIDE
  15. DIFLUCAN [Concomitant]
     Active Substance: FLUCONAZOLE
  16. DEXAMETHASONE. [Concomitant]
     Active Substance: DEXAMETHASONE
  17. PROAIR HFA [Concomitant]
     Active Substance: ALBUTEROL SULFATE
  18. PROCHLORPERAZINE. [Concomitant]
     Active Substance: PROCHLORPERAZINE
  19. ATRIPLA [Suspect]
     Active Substance: EFAVIRENZ\EMTRICITABINE\TENOFOVIR DISOPROXIL FUMARATE
     Dosage: UNK
     Route: 048
     Dates: start: 201209, end: 201212
  20. SULFAMETHOXAZOLE AND TRIMETHOPRIM [Concomitant]
     Active Substance: SULFAMETHOXAZOLE\TRIMETHOPRIM
  21. CEFDINIR. [Concomitant]
     Active Substance: CEFDINIR
  22. DESCOVY [Concomitant]
     Active Substance: EMTRICITABINE\TENOFOVIR ALAFENAMIDE FUMARATE
  23. MELOXICAM. [Concomitant]
     Active Substance: MELOXICAM
  24. CYCLOBENZAPRINE. [Concomitant]
     Active Substance: CYCLOBENZAPRINE
  25. HYDROCODONE/ACETAMINOPHEN [Concomitant]
     Active Substance: ACETAMINOPHEN\HYDROCODONE
  26. OSELTAMIVIR [Concomitant]
     Active Substance: OSELTAMIVIR
  27. ISENTRESS [Concomitant]
     Active Substance: RALTEGRAVIR POTASSIUM
  28. MOMETASONE [Concomitant]
     Active Substance: MOMETASONE

REACTIONS (8)
  - Wrist fracture [Recovered/Resolved]
  - Upper limb fracture [Recovered/Resolved]
  - Economic problem [Unknown]
  - Pain [Unknown]
  - Anhedonia [Unknown]
  - Anxiety [Unknown]
  - Upper limb fracture [Recovered/Resolved]
  - Emotional distress [Unknown]

NARRATIVE: CASE EVENT DATE: 201602
